FAERS Safety Report 6203379-3 (Version None)
Quarter: 2009Q2

REPORT INFORMATION
  Report Type: 
  Country: None (occurrence: None)
  Receive Date: 20090527
  Receipt Date: 20090518
  Transmission Date: 20091009
  Serious: Yes (Hospitalization)
  Sender: FDA-Public Use
  Company Number: GB-AVENTIS-200915220GDDC

PATIENT
  Age: 49 Year
  Sex: Female
  Weight: 55 kg

DRUGS (3)
  1. LEFLUNOMIDE [Suspect]
     Indication: RHEUMATOID ARTHRITIS
     Route: 048
     Dates: start: 20090126, end: 20090304
  2. INDOMETHACIN [Concomitant]
     Indication: RHEUMATOID ARTHRITIS
     Route: 048
     Dates: start: 20080101
  3. OMEPRAZOLE [Concomitant]
     Route: 048
     Dates: start: 20080101

REACTIONS (3)
  - DIARRHOEA [None]
  - LIVER FUNCTION TEST ABNORMAL [None]
  - SEPSIS [None]
